FAERS Safety Report 21593021 (Version 4)
Quarter: 2022Q4

REPORT INFORMATION
  Report Type: Spontaneous
  Country: JP (occurrence: JP)
  Receive Date: 20221114
  Receipt Date: 20221214
  Transmission Date: 20230112
  Serious: Yes (Death, Other)
  Sender: FDA-Public Use
  Company Number: JP-GILEAD-2022-0603075

PATIENT
  Age: 73 Year
  Sex: Female
  Weight: 39.4 kg

DRUGS (6)
  1. VEKLURY [Suspect]
     Active Substance: REMDESIVIR
     Indication: COVID-19
     Dosage: 200 MG, QD
     Route: 041
     Dates: start: 20221022, end: 20221022
  2. VEKLURY [Suspect]
     Active Substance: REMDESIVIR
     Dosage: 100 MG, QD
     Route: 041
     Dates: start: 20221023, end: 20221024
  3. ELIQUIS [Concomitant]
     Active Substance: APIXABAN
     Dosage: UNK
     Dates: start: 202207
  4. SAMSCA [Concomitant]
     Active Substance: TOLVAPTAN
     Dosage: UNK
     Dates: start: 202207, end: 20220725
  5. ESAXERENONE [Concomitant]
     Active Substance: ESAXERENONE
     Dosage: UNK
     Dates: start: 202207
  6. PREDONINE [Concomitant]
     Active Substance: PREDNISOLONE
     Dosage: 15 MG
     Dates: start: 2022

REACTIONS (10)
  - Hepatic function abnormal [Unknown]
  - Pericarditis [Fatal]
  - Depressed level of consciousness [Unknown]
  - Condition aggravated [Unknown]
  - Shock [Unknown]
  - Urine output decreased [Unknown]
  - Generalised oedema [Unknown]
  - Cyanosis [Unknown]
  - Blood pressure decreased [Unknown]
  - Tachycardia [Unknown]

NARRATIVE: CASE EVENT DATE: 20221001
